FAERS Safety Report 6886359-4 (Version None)
Quarter: 2010Q3

REPORT INFORMATION
  Report Type: 
  Country: None (occurrence: None)
  Receive Date: 20100729
  Receipt Date: 20080521
  Transmission Date: 20110219
  Serious: No
  Sender: FDA-Public Use
  Company Number: US-PFIZER INC-2008043673

PATIENT
  Sex: Male

DRUGS (2)
  1. CELEBREX [Suspect]
  2. BEXTRA [Suspect]
     Indication: COMPLEX REGIONAL PAIN SYNDROME

REACTIONS (2)
  - ABDOMINAL DISCOMFORT [None]
  - SKIN IRRITATION [None]
